FAERS Safety Report 6091425-X (Version None)
Quarter: 2009Q1

REPORT INFORMATION
  Report Type: 
  Country: None (occurrence: None)
  Receive Date: 20090219
  Receipt Date: 20090219
  Transmission Date: 20090719
  Serious: No
  Sender: FDA-Public Use
  Company Number: None

PATIENT
  Age: 20 Year
  Sex: Male
  Weight: 73.4827 kg

DRUGS (11)
  1. NALTREXONE HYDROCHLORIDE [Suspect]
     Dosage: 100MG PO
     Route: 048
  2. BENZTROPINE [Concomitant]
  3. DESMOPRESSIN ACETATE [Concomitant]
  4. LITHIUM [Concomitant]
  5. LORATADINE [Concomitant]
  6. MULTIVITAMIN W/ MINERAL [Concomitant]
  7. SEROQUEL [Concomitant]
  8. ZYPREXA [Concomitant]
  9. DOCUSATE [Concomitant]
  10. TRILEPTAL [Concomitant]
  11. NYSTATIN [Concomitant]

REACTIONS (3)
  - BURNING SENSATION [None]
  - ERYTHEMA [None]
  - PRURITUS [None]
